FAERS Safety Report 12161253 (Version 1)
Quarter: 2016Q1

REPORT INFORMATION
  Report Type: Spontaneous
  Country: CN (occurrence: CN)
  Receive Date: 20160308
  Receipt Date: 20160308
  Transmission Date: 20160526
  Serious: Yes (Hospitalization)
  Sender: FDA-Public Use
  Company Number: CN-ASTRAZENECA-2016SE24179

PATIENT
  Age: 942 Month
  Sex: Male

DRUGS (4)
  1. GEFITINIB [Suspect]
     Active Substance: GEFITINIB
     Indication: CHEMOTHERAPY
     Route: 048
     Dates: start: 20140704
  2. GEFITINIB [Suspect]
     Active Substance: GEFITINIB
     Indication: CHEMOTHERAPY
     Route: 048
     Dates: start: 20140717, end: 20140721
  3. GEFITINIB [Suspect]
     Active Substance: GEFITINIB
     Indication: CHEMOTHERAPY
     Route: 048
     Dates: start: 20140721
  4. GEFITINIB [Suspect]
     Active Substance: GEFITINIB
     Indication: CHEMOTHERAPY
     Route: 048
     Dates: start: 20140721

REACTIONS (5)
  - Liver disorder [Unknown]
  - Pruritus [Unknown]
  - Oedema peripheral [Unknown]
  - Rash [Recovering/Resolving]
  - Urticaria [Recovering/Resolving]

NARRATIVE: CASE EVENT DATE: 201407
